FAERS Safety Report 17484316 (Version 1)
Quarter: 2020Q1

REPORT INFORMATION
  Report Type: Spontaneous
  Country: US (occurrence: US)
  Receive Date: 20200219
  Receipt Date: 20200219
  Transmission Date: 20200409
  Serious: Yes (Other)
  Sender: FDA-Public Use
  Company Number: None

PATIENT
  Age: 63 Year
  Sex: Male
  Weight: 149.69 kg

DRUGS (2)
  1. CELECOXIB 200MG [Suspect]
     Active Substance: CELECOXIB
     Indication: OSTEOARTHRITIS
     Route: 048
     Dates: start: 20200102, end: 20200130
  2. CELECOXIB 200MG [Suspect]
     Active Substance: CELECOXIB
     Indication: NEURALGIA
     Route: 048
     Dates: start: 20200102, end: 20200130

REACTIONS (2)
  - Drug interaction [None]
  - Product substitution issue [None]

NARRATIVE: CASE EVENT DATE: 20200102
